FAERS Safety Report 5106774-9 (Version None)
Quarter: 2006Q3

REPORT INFORMATION
  Report Type: 
  Country: None (occurrence: None)
  Receive Date: 20060731
  Receipt Date: 20051007
  Transmission Date: 20061208
  Serious: Yes (Other)
  Sender: FDA-Public Use
  Company Number: US-JNJFOC-20050902852

PATIENT
  Age: 84 Year
  Sex: Female
  Weight: 76.2043 kg

DRUGS (4)
  1. RISPERDAL [Suspect]
     Indication: DEMENTIA
     Dosage: 0.25 MG, IN 1 DAY
     Dates: start: 20050326, end: 20050803
  2. RISPERDAL [Suspect]
     Indication: DEPRESSION
     Dosage: 0.25 MG, IN 1 DAY
     Dates: start: 20050326, end: 20050803
  3. NAMENDA [Suspect]
     Indication: DEMENTIA
     Dosage: 10 MG, 2 IN 1 DAY, ORAL
     Route: 048
     Dates: start: 20050105, end: 20050803
  4. CELEBREX [Suspect]
     Indication: OSTEOARTHRITIS
     Dosage: 200 MG, 1 IN 1 DAY, ORAL
     Route: 048
     Dates: start: 20050526, end: 20050809

REACTIONS (2)
  - ALANINE AMINOTRANSFERASE INCREASED [None]
  - BLOOD ALKALINE PHOSPHATASE INCREASED [None]
